FAERS Safety Report 14946745 (Version 2)
Quarter: 2018Q3

REPORT INFORMATION
  Report Type: Report from Study
  Country: US (occurrence: US)
  Receive Date: 20180529
  Receipt Date: 20180823
  Transmission Date: 20181010
  Serious: Yes (Hospitalization, Other)
  Sender: FDA-Public Use
  Company Number: US-JNJFOC-20180239760

PATIENT
  Age: 77 Year
  Sex: Female

DRUGS (21)
  1. ONDANSETRON [Concomitant]
     Active Substance: ONDANSETRON
  2. STOOL SOFTENER (DOCUSATE) [Concomitant]
     Active Substance: DOCUSATE
  3. IMBRUVICA [Suspect]
     Active Substance: IBRUTINIB
     Indication: BREAST CANCER FEMALE
     Route: 048
     Dates: start: 20171215
  4. VITAMIN D [Concomitant]
     Active Substance: CHOLECALCIFEROL
  5. SYNTHROID [Concomitant]
     Active Substance: LEVOTHYROXINE SODIUM
  6. IMBRUVICA [Suspect]
     Active Substance: IBRUTINIB
     Indication: CHRONIC LYMPHOCYTIC LEUKAEMIA
     Route: 048
     Dates: start: 20180331, end: 20180619
  7. BIOTIN [Concomitant]
     Active Substance: BIOTIN
  8. PREDNISONE. [Concomitant]
     Active Substance: PREDNISONE
  9. IMBRUVICA [Suspect]
     Active Substance: IBRUTINIB
     Indication: CHRONIC LYMPHOCYTIC LEUKAEMIA
     Route: 048
     Dates: start: 20180620
  10. LIDODERM [Concomitant]
     Active Substance: LIDOCAINE
  11. PROCHLORPERAZINE. [Concomitant]
     Active Substance: PROCHLORPERAZINE
  12. IMBRUVICA [Suspect]
     Active Substance: IBRUTINIB
     Indication: CHRONIC LYMPHOCYTIC LEUKAEMIA
     Route: 048
     Dates: start: 20170524, end: 20180330
  13. IMBRUVICA [Suspect]
     Active Substance: IBRUTINIB
     Indication: BREAST CANCER FEMALE
     Route: 048
     Dates: start: 20180620
  14. NORVASC [Concomitant]
     Active Substance: AMLODIPINE BESYLATE
  15. HYDROCORTISONE. [Concomitant]
     Active Substance: HYDROCORTISONE
  16. PRILOSEC [Concomitant]
     Active Substance: OMEPRAZOLE MAGNESIUM
  17. IMBRUVICA [Suspect]
     Active Substance: IBRUTINIB
     Indication: BREAST CANCER FEMALE
     Route: 048
     Dates: start: 20170524, end: 20180330
  18. PHENAZOPYRIDINE. [Concomitant]
     Active Substance: PHENAZOPYRIDINE
  19. VITAMIN B COMPLEX [Concomitant]
     Active Substance: CYANOCOBALAMIN\DEXPANTHENOL\NIACINAMIDE\PYRIDOXINE HYDROCHLORIDE\RIBOFLAVIN 5^-PHOSPHATE SODIUM\THIAMINE HYDROCHLORIDE\VITAMIN B COMPLEX
  20. IMBRUVICA [Suspect]
     Active Substance: IBRUTINIB
     Indication: CHRONIC LYMPHOCYTIC LEUKAEMIA
     Route: 048
     Dates: start: 20171215
  21. IMBRUVICA [Suspect]
     Active Substance: IBRUTINIB
     Indication: BREAST CANCER FEMALE
     Route: 048
     Dates: start: 20180331, end: 20180619

REACTIONS (8)
  - Product use in unapproved indication [Unknown]
  - Incorrect dose administered [Unknown]
  - Spinal fracture [Not Recovered/Not Resolved]
  - Disease progression [Recovered/Resolved]
  - Off label use [Unknown]
  - Dyspnoea [Unknown]
  - Nausea [Unknown]
  - Herpes zoster [Recovered/Resolved]

NARRATIVE: CASE EVENT DATE: 20170524
